FAERS Safety Report 4877331-4 (Version None)
Quarter: 2006Q1

REPORT INFORMATION
  Report Type: 
  Country: None (occurrence: None)
  Receive Date: 20060109
  Receipt Date: 20051227
  Transmission Date: 20060701
  Serious: Yes (Death, Hospitalization)
  Sender: FDA-Public Use
  Company Number: 2005-BP-21844RO

PATIENT
  Age: 83 Year
  Sex: Female

DRUGS (4)
  1. METHOTREXATE [Suspect]
     Dosage: 10  MG PER WEEK, PO
     Route: 048
  2. FOLIC ACID [Concomitant]
  3. FUROSEMIDE [Concomitant]
  4. ALENDRONATE (ALENDRONATE SODIUM) [Concomitant]

REACTIONS (3)
  - ACUTE MYELOID LEUKAEMIA [None]
  - ANGINA PECTORIS [None]
  - PANCYTOPENIA [None]
